FAERS Safety Report 12334549 (Version 1)
Quarter: 2016Q2

REPORT INFORMATION
  Report Type: Spontaneous
  Country: US (occurrence: US)
  Receive Date: 20160504
  Receipt Date: 20160504
  Transmission Date: 20160815
  Serious: No
  Sender: FDA-Public Use
  Company Number: US-ROCHE-ITM201506IM017241

PATIENT
  Sex: Male
  Weight: 75.36 kg

DRUGS (3)
  1. WARFARIN SODIUM. [Concomitant]
     Active Substance: WARFARIN SODIUM
  2. VENTAVIS [Concomitant]
     Active Substance: ILOPROST
  3. ESBRIET [Suspect]
     Active Substance: PIRFENIDONE
     Indication: IDIOPATHIC PULMONARY FIBROSIS
     Dosage: WITH FOOD.
     Route: 048
     Dates: start: 20150403

REACTIONS (3)
  - Malaise [Unknown]
  - Diarrhoea [Unknown]
  - Drug dose omission [Unknown]
